FAERS Safety Report 19902164 (Version 2)
Quarter: 2022Q1

REPORT INFORMATION
  Report Type: Report from Study
  Country: CA (occurrence: CA)
  Receive Date: 20210930
  Receipt Date: 20220307
  Transmission Date: 20220424
  Serious: Yes (Other)
  Sender: FDA-Public Use
  Company Number: CA-BRISTOL-MYERS SQUIBB COMPANY-BMS-2020-007494

PATIENT
  Age: 18 Month
  Sex: Female

DRUGS (1)
  1. ABATACEPT [Suspect]
     Active Substance: ABATACEPT
     Indication: Product used for unknown indication
     Dosage: 75 MILLIGRAM, Q2WK
     Route: 058
     Dates: start: 20200124

REACTIONS (2)
  - Bone marrow disorder [Unknown]
  - Intentional product use issue [Unknown]
